FAERS Safety Report 10033118 (Version 1)
Quarter: 2014Q1

REPORT INFORMATION
  Report Type: Report from Study
  Country: US (occurrence: US)
  Receive Date: 20140324
  Receipt Date: 20140324
  Transmission Date: 20141002
  Serious: Yes (Hospitalization, Other)
  Sender: FDA-Public Use
  Company Number: US-ABBVIE-14P-163-1213309-00

PATIENT
  Sex: Female
  Weight: 38.59 kg

DRUGS (6)
  1. HUMIRA [Suspect]
     Indication: CROHN^S DISEASE
     Dates: start: 2012, end: 2012
  2. HUMIRA [Suspect]
     Dosage: TWO WEEKS AFTER 80 MG DOSE
     Dates: start: 2012, end: 201306
  3. VITAMINS [Concomitant]
     Indication: VITAMIN SUPPLEMENTATION
  4. ZINC [Concomitant]
     Indication: MINERAL SUPPLEMENTATION
  5. VITAMIN D [Concomitant]
     Indication: VITAMIN SUPPLEMENTATION
  6. CALCIUM [Concomitant]
     Indication: MINERAL SUPPLEMENTATION

REACTIONS (4)
  - Red blood cell sedimentation rate increased [Unknown]
  - Crohn^s disease [Recovering/Resolving]
  - Injection site pain [Not Recovered/Not Resolved]
  - Crohn^s disease [Unknown]
